FAERS Safety Report 21098415 (Version 1)
Quarter: 2022Q3

REPORT INFORMATION
  Report Type: Spontaneous
  Country: US (occurrence: US)
  Receive Date: 20220719
  Receipt Date: 20220719
  Transmission Date: 20221026
  Serious: No
  Sender: FDA-Public Use
  Company Number: US-NATCOUSA-2022-NATCOUSA-000042

PATIENT
  Age: 72 Year
  Sex: Female
  Weight: 55.34 kg

DRUGS (1)
  1. LETROZOLE [Suspect]
     Active Substance: LETROZOLE
     Indication: Product used for unknown indication

REACTIONS (2)
  - Eye irritation [Unknown]
  - Product odour abnormal [Unknown]
